FAERS Safety Report 6987153-6 (Version None)
Quarter: 2010Q3

REPORT INFORMATION
  Report Type: 
  Country: None (occurrence: None)
  Receive Date: 20100916
  Receipt Date: 20100905
  Transmission Date: 20110219
  Serious: Yes (Other)
  Sender: FDA-Public Use
  Company Number: US-PFIZER INC-2009276018

PATIENT
  Sex: Female
  Weight: 83 kg

DRUGS (6)
  1. CHANTIX [Suspect]
     Indication: SMOKING CESSATION THERAPY
     Dosage: 0.5 MG, 1X/DAY
     Route: 048
     Dates: start: 20090501
  2. CHANTIX [Suspect]
     Dosage: 0.5 MG, 1X/DAY
     Route: 048
     Dates: start: 20100819
  3. CHANTIX [Suspect]
     Dosage: 1 MG, 2X/DAY
     Route: 048
     Dates: start: 20100801
  4. METHOCARBAMOL [Concomitant]
     Dosage: 750 MG, DAILY
  5. CALCIUM [Concomitant]
     Dosage: UNK, 2X/DAY
  6. ESTROVEN [Concomitant]
     Dosage: UNK

REACTIONS (5)
  - EROSIVE OESOPHAGITIS [None]
  - FOOT FRACTURE [None]
  - PHARYNGEAL DISORDER [None]
  - SURGERY [None]
  - WHEEZING [None]
